FAERS Safety Report 17211155 (Version 2)
Quarter: 2019Q4

REPORT INFORMATION
  Report Type: Report from Study
  Country: None (occurrence: CH)
  Receive Date: 20191228
  Receipt Date: 20191231
  Transmission Date: 20200122
  Serious: Yes (Death)
  Sender: FDA-Public Use
  Company Number: CH-ABBVIE-19K-151-3213163-00

PATIENT
  Age: 76 Year
  Sex: Female

DRUGS (4)
  1. DUODOPA [Suspect]
     Active Substance: CARBIDOPA\LEVODOPA
     Dosage: 16H THERAPY MORNING DOSE 3.5ML; CONTINUOUS RATE-DAY 3.5ML/H; EXTRA DOSE 2ML
     Route: 050
     Dates: start: 20190708, end: 20191125
  2. DUODOPA [Suspect]
     Active Substance: CARBIDOPA\LEVODOPA
     Route: 050
     Dates: start: 20190703, end: 20190708
  3. DUODOPA [Suspect]
     Active Substance: CARBIDOPA\LEVODOPA
     Dosage: 16H THERAPY MORNING DOSE 3.8ML; CONTINUOUS RATE-DAY 4.8ML/H; EXTRA DOSE 2ML
     Route: 050
     Dates: start: 20191125, end: 20191220
  4. DUODOPA [Suspect]
     Active Substance: CARBIDOPA\LEVODOPA
     Indication: PARKINSON^S DISEASE
     Dosage: 1 CASSETTE?STRENGTH (CMP): 20 MG/ML 5 MG/ML
     Route: 050
     Dates: start: 201807

REACTIONS (1)
  - Choking [Fatal]

NARRATIVE: CASE EVENT DATE: 20191220
